FAERS Safety Report 7237890-3 (Version None)
Quarter: 2011Q1

REPORT INFORMATION
  Report Type: 
  Country: None (occurrence: None)
  Receive Date: 20110121
  Receipt Date: 20110114
  Transmission Date: 20110831
  Serious: Yes (Hospitalization)
  Sender: FDA-Public Use
  Company Number: US-EISAI INC-E2020-08384-SOL-US

PATIENT
  Sex: Female
  Weight: 67.57 kg

DRUGS (6)
  1. METOPROLOL TARTRATE [Interacting]
     Indication: TACHYCARDIA
     Route: 048
     Dates: start: 20070329, end: 20090619
  2. METOPROLOL TARTRATE [Interacting]
     Route: 048
     Dates: start: 20090624
  3. NAMENDA [Concomitant]
     Dosage: UNNKNOWN
     Route: 048
     Dates: start: 20070401
  4. BONIVA [Concomitant]
     Indication: OSTEOPOROSIS
     Dosage: UNKNOWN
     Route: 048
     Dates: start: 20070101
  5. METOPROLOL TARTRATE [Interacting]
     Route: 048
     Dates: start: 20090620, end: 20090623
  6. ARICEPT [Suspect]
     Route: 048
     Dates: start: 20081219

REACTIONS (3)
  - SYNCOPE [None]
  - VERTIGO [None]
  - DRUG INTERACTION [None]
